FAERS Safety Report 21061644 (Version 1)
Quarter: 2022Q3

REPORT INFORMATION
  Report Type: Spontaneous
  Country: PK (occurrence: None)
  Receive Date: 20220709
  Receipt Date: 20220709
  Transmission Date: 20221026
  Serious: Yes (Death)
  Sender: FDA-Public Use
  Company Number: PK-ROCHE-3134483

PATIENT
  Age: 74 Year
  Sex: Male

DRUGS (1)
  1. RITUXIMAB [Suspect]
     Active Substance: RITUXIMAB
     Indication: Non-Hodgkin^s lymphoma
     Route: 041
     Dates: start: 20220421, end: 20220630

REACTIONS (1)
  - Death [Fatal]

NARRATIVE: CASE EVENT DATE: 20220601
